FAERS Safety Report 9330114 (Version 1)
Quarter: 2013Q2

REPORT INFORMATION
  Report Type: Spontaneous
  Country: BR (occurrence: BR)
  Receive Date: 20130604
  Receipt Date: 20130604
  Transmission Date: 20140414
  Serious: Yes (Death)
  Sender: FDA-Public Use
  Company Number: PHHY2013BR055443

PATIENT
  Age: 76 Year
  Sex: Male

DRUGS (1)
  1. BUFFERIN [Suspect]
     Indication: PAIN IN EXTREMITY
     Dosage: 2 DF
     Route: 048

REACTIONS (1)
  - Chronic obstructive pulmonary disease [Fatal]
